FAERS Safety Report 12602842 (Version 1)
Quarter: 2016Q3

REPORT INFORMATION
  Report Type: Spontaneous
  Country: US (occurrence: US)
  Receive Date: 20160728
  Receipt Date: 20160728
  Transmission Date: 20161109
  Serious: Yes (Other)
  Sender: FDA-Public Use
  Company Number: US-PERRIGO-16US018429

PATIENT

DRUGS (3)
  1. ACETAMINOPHEN. [Suspect]
     Active Substance: ACETAMINOPHEN
     Indication: SUICIDE ATTEMPT
     Dosage: UNKNOWN, UNKNOWN
     Route: 048
  2. VALPROATE [Suspect]
     Active Substance: VALPROIC ACID
     Indication: SUICIDE ATTEMPT
     Dosage: UNKNOWN, UNKNOWN
     Route: 048
  3. METHOTREXATE. [Suspect]
     Active Substance: METHOTREXATE
     Indication: SUICIDE ATTEMPT
     Dosage: UNKNOWN, UNKNOWN
     Route: 048

REACTIONS (2)
  - Intentional overdose [Unknown]
  - Hepatotoxicity [Unknown]
